FAERS Safety Report 20358707 (Version 1)
Quarter: 2022Q1

REPORT INFORMATION
  Report Type: Spontaneous
  Country: US (occurrence: US)
  Receive Date: 20220120
  Receipt Date: 20220120
  Transmission Date: 20220423
  Serious: No
  Sender: FDA-Public Use
  Company Number: US-NOVOPROD-830381

PATIENT
  Age: 33 Year
  Sex: Female

DRUGS (1)
  1. OZEMPIC [Suspect]
     Active Substance: SEMAGLUTIDE
     Indication: Polycystic ovaries
     Dosage: 0.25 MG QW
     Route: 058
     Dates: start: 20210614, end: 20210705

REACTIONS (3)
  - Neurotransmitter level altered [Unknown]
  - Decreased appetite [Unknown]
  - Off label use [Recovered/Resolved]

NARRATIVE: CASE EVENT DATE: 20210614
